FAERS Safety Report 19910292 (Version 1)
Quarter: 2021Q4

REPORT INFORMATION
  Report Type: Report from Study
  Country: US (occurrence: US)
  Receive Date: 20211004
  Receipt Date: 20211004
  Transmission Date: 20220303
  Serious: No
  Sender: FDA-Public Use
  Company Number: US-ACADIA PHARMACEUTICALS INC.-ACA-2021-PIM-003293

PATIENT
  Sex: Male

DRUGS (19)
  1. NUPLAZID [Suspect]
     Active Substance: PIMAVANSERIN TARTRATE
     Indication: Parkinson^s disease
     Dosage: 34 MILLIGRAM, QD
     Route: 048
  2. APOKYN [Concomitant]
     Active Substance: APOMORPHINE HYDROCHLORIDE
  3. BYETTA [Concomitant]
     Active Substance: EXENATIDE
  4. CALCIUM\VITAMIN D [Concomitant]
     Active Substance: CALCIUM\VITAMIN D
  5. CARBIDOPA\LEVODOPA [Concomitant]
     Active Substance: CARBIDOPA\LEVODOPA
  6. DICLOFENAC [Concomitant]
     Active Substance: DICLOFENAC
  7. INBRIJA [Concomitant]
     Active Substance: LEVODOPA
  8. MIRAPEX [Concomitant]
     Active Substance: PRAMIPEXOLE DIHYDROCHLORIDE
  9. MULTIVIT [VITAMINS NOS] [Concomitant]
  10. NOURIANZ [Concomitant]
     Active Substance: ISTRADEFYLLINE
  11. OMEGA-3 FATTY ACIDS [Concomitant]
     Active Substance: OMEGA-3 FATTY ACIDS
  12. OMEPRAZOLE [Concomitant]
     Active Substance: OMEPRAZOLE
  13. PRAMIPEXOLE [Concomitant]
     Active Substance: PRAMIPEXOLE
  14. RIVASTIGMINE [Concomitant]
     Active Substance: RIVASTIGMINE
  15. ROPINIROLE [Concomitant]
     Active Substance: ROPINIROLE
  16. TAMSULOSIN [Concomitant]
     Active Substance: TAMSULOSIN
  17. TERAZOSIN [Concomitant]
     Active Substance: TERAZOSIN HYDROCHLORIDE
  18. TOLTERODINE [Concomitant]
     Active Substance: TOLTERODINE
  19. VIT D-ALPHA [Concomitant]

REACTIONS (1)
  - Hallucination [Not Recovered/Not Resolved]
